FAERS Safety Report 21433968 (Version 1)
Quarter: 2022Q4

REPORT INFORMATION
  Report Type: Report from Study
  Country: US (occurrence: US)
  Receive Date: 20221010
  Receipt Date: 20221010
  Transmission Date: 20230113
  Serious: No
  Sender: FDA-Public Use
  Company Number: US-NOVARTISTESTPH-NVSC2022US226784

PATIENT
  Sex: Female

DRUGS (1)
  1. COSENTYX [Suspect]
     Active Substance: SECUKINUMAB
     Indication: Psoriasis
     Dosage: 300 MG/KG, QMO (EVERY 4 WEEKS)
     Route: 003

REACTIONS (7)
  - Alopecia [Unknown]
  - Skin mass [Unknown]
  - Psoriasis [Unknown]
  - Skin plaque [Unknown]
  - Skin lesion [Unknown]
  - Incorrect route of product administration [Unknown]
  - Therapeutic response shortened [Unknown]
